FAERS Safety Report 23233763 (Version 1)
Quarter: 2023Q4

REPORT INFORMATION
  Report Type: Report from Study
  Country: US (occurrence: US)
  Receive Date: 20231128
  Receipt Date: 20231128
  Transmission Date: 20240110
  Serious: No
  Sender: FDA-Public Use
  Company Number: US-JNJFOC-20231114478

PATIENT
  Age: 75 Year
  Sex: Female

DRUGS (1)
  1. SIMPONI [Suspect]
     Active Substance: GOLIMUMAB
     Indication: Osteoporosis
     Dosage: STRENGTH: 50.00 MG / 0.50 ML
     Route: 058

REACTIONS (6)
  - Device failure [Unknown]
  - Product dose omission issue [Unknown]
  - Pain [Unknown]
  - Arthritis [Unknown]
  - Off label use [Unknown]
  - Off label use [Unknown]
